FAERS Safety Report 14119061 (Version 1)
Quarter: 2017Q4

REPORT INFORMATION
  Report Type: Spontaneous
  Country: GB (occurrence: GB)
  Receive Date: 20171024
  Receipt Date: 20171024
  Transmission Date: 20180321
  Serious: Yes (Hospitalization, Other)
  Sender: FDA-Public Use
  Company Number: GB-AUROBINDO-AUR-APL-2017-42000

PATIENT
  Sex: Female

DRUGS (2)
  1. PARACETAMOL [Suspect]
     Active Substance: ACETAMINOPHEN
     Indication: PAIN
     Route: 065
  2. EPILIM [Suspect]
     Active Substance: VALPROATE SODIUM
     Indication: GENERALISED TONIC-CLONIC SEIZURE
     Route: 065

REACTIONS (9)
  - Foetal death [Unknown]
  - Intentional overdose [Unknown]
  - Aggression [Unknown]
  - Cerebrovascular accident [Recovered/Resolved]
  - Pain [Unknown]
  - Blindness transient [Unknown]
  - Exposure during pregnancy [Unknown]
  - Suicidal ideation [Unknown]
  - Seizure [Unknown]

NARRATIVE: CASE EVENT DATE: 2012
